FAERS Safety Report 21445515 (Version 2)
Quarter: 2025Q1

REPORT INFORMATION
  Report Type: Report from Study
  Country: DE (occurrence: DE)
  Receive Date: 20221012
  Receipt Date: 20250106
  Transmission Date: 20250409
  Serious: Yes (Other)
  Sender: GILEAD
  Company Number: DE-GILEAD-2022-0600667

PATIENT
  Age: 71 Year
  Sex: Female

DRUGS (2)
  1. AXICABTAGENE CILOLEUCEL [Suspect]
     Active Substance: AXICABTAGENE CILOLEUCEL
     Indication: Mantle cell lymphoma
     Route: 042
  2. BORTEZOMIB;RITUXIMAB [Concomitant]
     Indication: Mantle cell lymphoma

REACTIONS (4)
  - Leukaemia recurrent [Unknown]
  - Thrombocytopenia [Unknown]
  - Cytokine release syndrome [Unknown]
  - Immune effector cell-associated neurotoxicity syndrome [Unknown]
